FAERS Safety Report 19173468 (Version 3)
Quarter: 2022Q1

REPORT INFORMATION
  Report Type: Spontaneous
  Country: US (occurrence: US)
  Receive Date: 20210423
  Receipt Date: 20220311
  Transmission Date: 20220423
  Serious: Yes (Other)
  Sender: FDA-Public Use
  Company Number: US-DRREDDYS-USA/USA/21/0134682

PATIENT
  Age: 23 Year
  Sex: Female

DRUGS (3)
  1. DOXORUBICIN HYDROCHLORIDE [Suspect]
     Active Substance: DOXORUBICIN HYDROCHLORIDE
     Indication: Pancreatoblastoma
     Dosage: FIVE DAY REGIMEN
  2. CISPLATIN [Suspect]
     Active Substance: CISPLATIN
     Indication: Pancreatoblastoma
     Dosage: FIVE DAY REGIMEN
  3. ETOPOSIDE [Suspect]
     Active Substance: ETOPOSIDE
     Indication: Pancreatoblastoma
     Dosage: FIVE DAY REGIMEN

REACTIONS (9)
  - Tinnitus [Unknown]
  - Tension headache [Unknown]
  - Cardiac murmur [Unknown]
  - Staphylococcus test [Recovered/Resolved]
  - Nausea [Unknown]
  - Abdominal pain [Unknown]
  - Hypotension [Unknown]
  - Syncope [Unknown]
  - Maternal exposure during pregnancy [Unknown]
